FAERS Safety Report 23231039 (Version 1)
Quarter: 2023Q4

REPORT INFORMATION
  Report Type: Spontaneous
  Country: KR (occurrence: KR)
  Receive Date: 20231127
  Receipt Date: 20231127
  Transmission Date: 20240110
  Serious: Yes (Hospitalization, Other)
  Sender: FDA-Public Use
  Company Number: KR-SUN PHARMACEUTICAL INDUSTRIES LTD-2023R1-420346

PATIENT
  Age: 29 Year
  Sex: Male
  Weight: 73 kg

DRUGS (1)
  1. DEXMEDETOMIDINE [Suspect]
     Active Substance: DEXMEDETOMIDINE
     Indication: Sedative therapy
     Dosage: UNK (0.9 UG/KG)
     Route: 042

REACTIONS (2)
  - Bradycardia [Recovered/Resolved]
  - Haemodynamic instability [Recovered/Resolved]
